FAERS Safety Report 23822752 (Version 1)
Quarter: 2024Q2

REPORT INFORMATION
  Report Type: Spontaneous
  Country: EU (occurrence: EU)
  Receive Date: 20240506
  Receipt Date: 20240506
  Transmission Date: 20240716
  Serious: Yes (Hospitalization)
  Sender: FDA-Public Use
  Company Number: None

PATIENT

DRUGS (3)
  1. BUPRENORPHINE HYDROCHLORIDE [Suspect]
     Active Substance: BUPRENORPHINE HYDROCHLORIDE
     Dosage: 20MG/J
  2. BROMAZEPAM [Suspect]
     Active Substance: BROMAZEPAM
     Dosage: 3 BARRETTES DE 6MG PAR JOUR
  3. COCAINE [Suspect]
     Active Substance: COCAINE

REACTIONS (2)
  - Intentional product misuse [Recovering/Resolving]
  - Drug detoxification [Recovered/Resolved]
